FAERS Safety Report 9656538 (Version 1)
Quarter: 2013Q4

REPORT INFORMATION
  Report Type: Report from Study
  Country: GB (occurrence: GB)
  Receive Date: 20131030
  Receipt Date: 20131030
  Transmission Date: 20140711
  Serious: Yes (Hospitalization)
  Sender: FDA-Public Use
  Company Number: GB-ROCHE-1295671

PATIENT
  Sex: Male
  Weight: 99 kg

DRUGS (2)
  1. RITUXIMAB [Suspect]
     Indication: RHEUMATOID ARTHRITIS
     Dosage: DATE OF LAST DOSE PRIOR TO SAE: 14 /MAY/2012
     Route: 065
     Dates: start: 20120430
  2. METHOTREXATE [Concomitant]
     Route: 065

REACTIONS (2)
  - Urosepsis [Unknown]
  - Renal failure acute [Unknown]
